FAERS Safety Report 8462369-0 (Version None)
Quarter: 2012Q2

REPORT INFORMATION
  Report Type: 
  Country: None (occurrence: None)
  Receive Date: 20120625
  Receipt Date: 20120619
  Transmission Date: 20120825
  Serious: Yes (Other)
  Sender: FDA-Public Use
  Company Number: US-PFIZER INC-2012087506

PATIENT
  Sex: Female
  Weight: 71 kg

DRUGS (10)
  1. DILAUDID [Suspect]
     Indication: ARTHRALGIA
     Dosage: UNK
  2. NEXIUM [Concomitant]
     Indication: GASTRIC DISORDER
     Dosage: UNK
  3. NEURONTIN [Suspect]
     Indication: ARTHRALGIA
     Dosage: 100 MG, UNK
     Dates: start: 20120101
  4. CORTISONE ACETATE [Suspect]
     Dosage: UNK
  5. FIBERCON [Suspect]
     Indication: CONSTIPATION
     Dosage: UNK, 1X/DAY
     Route: 048
     Dates: start: 20120405, end: 20120405
  6. DILAUDID [Suspect]
     Indication: BACK PAIN
  7. FIBERCON [Suspect]
     Dosage: UNKNOWN DOSE ONCE A DAY
     Route: 048
     Dates: start: 20120101
  8. NEURONTIN [Suspect]
  9. NEURONTIN [Suspect]
     Indication: BACK PAIN
  10. DILAUDID [Suspect]

REACTIONS (14)
  - ARTHROPATHY [None]
  - DRUG HYPERSENSITIVITY [None]
  - PHARYNGEAL OEDEMA [None]
  - HEADACHE [None]
  - ARTHRALGIA [None]
  - DYSPEPSIA [None]
  - MALAISE [None]
  - ERYTHEMA [None]
  - CONSTIPATION [None]
  - SWELLING FACE [None]
  - NAUSEA [None]
  - DYSPNOEA [None]
  - DYSGEUSIA [None]
  - OESOPHAGEAL PAIN [None]
